FAERS Safety Report 7001146-4 (Version None)
Quarter: 2010Q3

REPORT INFORMATION
  Report Type: 
  Country: None (occurrence: None)
  Receive Date: 20100920
  Receipt Date: 20100913
  Transmission Date: 20110219
  Serious: Yes (Other)
  Sender: FDA-Public Use
  Company Number: CHPA2010US14661

PATIENT
  Age: 82 Year
  Sex: Female
  Weight: 49.887 kg

DRUGS (2)
  1. PREVACID 24 HR [Suspect]
     Indication: GASTROOESOPHAGEAL REFLUX DISEASE
     Dosage: 15 MG, PRN
     Route: 048
     Dates: start: 20100101, end: 20100831
  2. RECLAST [Suspect]
     Indication: OSTEOPOROSIS
     Dosage: UNK, ONCE/SINGLE
     Dates: start: 20100901, end: 20100901

REACTIONS (1)
  - AGEUSIA [None]
